FAERS Safety Report 5814566-8 (Version None)
Quarter: 2008Q3

REPORT INFORMATION
  Report Type: 
  Country: None (occurrence: None)
  Receive Date: 20080718
  Receipt Date: 20070827
  Transmission Date: 20090109
  Serious: No
  Sender: FDA-Public Use
  Company Number: US-KINGPHARMUSA00001-K200701093

PATIENT

DRUGS (5)
  1. LEVOXYL [Suspect]
     Indication: HYPOTHYROIDISM
     Dosage: 75 MCG, QD
     Route: 048
  2. LEVOXYL [Suspect]
     Dosage: 125 MCG, QD
     Route: 048
  3. LEVOXYL [Suspect]
     Dosage: 100 MCG, QD
     Route: 048
     Dates: start: 20070201
  4. LEVOXYL [Suspect]
     Dosage: 112 MCG, QD
     Route: 048
     Dates: end: 20070726
  5. LEVOXYL [Suspect]
     Dosage: 100 MCG, QD
     Route: 048
     Dates: start: 20070726, end: 20070826

REACTIONS (3)
  - NAUSEA [None]
  - RETCHING [None]
  - THYROID FUNCTION TEST ABNORMAL [None]
